FAERS Safety Report 4447507-9 (Version None)
Quarter: 2004Q3

REPORT INFORMATION
  Report Type: 
  Country: None (occurrence: None)
  Receive Date: 20040823
  Receipt Date: 20040525
  Transmission Date: 20050211
  Serious: No
  Sender: FDA-Public Use
  Company Number: PHEH2004US05739

PATIENT
  Age: 72 Year
  Sex: Female

DRUGS (1)
  1. ZELNORM [Suspect]
     Indication: CONSTIPATION
     Dosage: 6 MG QD ORAL
     Route: 048
     Dates: start: 20040501

REACTIONS (2)
  - DIARRHOEA [None]
  - HERPES ZOSTER [None]
